FAERS Safety Report 24863764 (Version 1)
Quarter: 2025Q1

REPORT INFORMATION
  Report Type: Spontaneous
  Country: US (occurrence: US)
  Receive Date: 20250120
  Receipt Date: 20250120
  Transmission Date: 20250409
  Serious: No
  Sender: Phathom Pharmaceuticals
  Company Number: US-PHATHOM PHARMACEUTICALS INC.-2024PHT01046

PATIENT
  Age: 92 Year
  Sex: Female
  Weight: 62.585 kg

DRUGS (5)
  1. VOQUEZNA [Suspect]
     Active Substance: VONOPRAZAN FUMARATE
     Indication: Abdominal pain
     Dosage: 20 MG, 1X/DAY
     Route: 048
     Dates: start: 202409, end: 202409
  2. VITAMINS [Concomitant]
     Active Substance: VITAMINS
  3. VITAMIN D3 [Concomitant]
     Active Substance: CHOLECALCIFEROL
  4. ELIQUIS [Concomitant]
     Active Substance: APIXABAN
  5. FLECAINIDE [Concomitant]
     Active Substance: FLECAINIDE

REACTIONS (3)
  - Nausea [Recovered/Resolved]
  - Headache [Recovered/Resolved]
  - Off label use [Recovered/Resolved]

NARRATIVE: CASE EVENT DATE: 20240901
